FAERS Safety Report 9177560 (Version 1)
Quarter: 2012Q4

REPORT INFORMATION
  Report Type: 
  Country: US (occurrence: US)
  Receive Date: 20120928
  Receipt Date: 20120928
  Transmission Date: 20130627
  Serious: Yes (Other)
  Sender: FDA-Public Use
  Company Number: US-RB-027149-11

PATIENT
  Age: 37 None
  Sex: Female

DRUGS (1)
  1. SUBUTEX [Suspect]
     Indication: PRODUCT USED FOR UNKNOWN INDICATION
     Dosage: 1/2 tablet TID
     Route: 060
     Dates: start: 20110505, end: 20110628

REACTIONS (2)
  - Selective abortion [Recovered/Resolved]
  - Exposure during pregnancy [Recovered/Resolved]
